FAERS Safety Report 8886875 (Version 3)
Quarter: 2012Q4

REPORT INFORMATION
  Report Type: 
  Country: US (occurrence: US)
  Receive Date: 20121105
  Receipt Date: 20121212
  Transmission Date: 20130627
  Serious: Yes (Other)
  Sender: FDA-Public Use
  Company Number: US-PFIZER INC-2012269840

PATIENT
  Age: 51 Year
  Sex: Female
  Weight: 106.57 kg

DRUGS (7)
  1. SUTENT [Suspect]
     Indication: GASTROINTESTINAL CANCER METASTATIC
     Dosage: 25 mg, continuously
     Dates: start: 20120920, end: 20121022
  2. SUTENT [Suspect]
     Dosage: 37.5 mg, UNK
     Dates: start: 20121023, end: 20121025
  3. SUTENT [Suspect]
     Dosage: 37.5 mg, UNK
     Dates: start: 20121030
  4. NEXIUM [Concomitant]
     Indication: HIATAL HERNIA
     Dosage: UNK
  5. XANAX [Concomitant]
     Indication: PANIC ATTACKS
     Dosage: 0.25 mg, as needed
  6. XANAX [Concomitant]
     Dosage: UNK, as needed
  7. ZOLOFT [Concomitant]
     Dosage: 200 mg, 1x/day

REACTIONS (7)
  - Blood pressure increased [Unknown]
  - Yellow skin [Unknown]
  - Neck pain [Unknown]
  - Night sweats [Unknown]
  - Platelet count decreased [Unknown]
  - Increased appetite [Unknown]
  - Weight increased [Unknown]
